FAERS Safety Report 11686257 (Version 2)
Quarter: 2016Q1

REPORT INFORMATION
  Report Type: Spontaneous
  Country: US (occurrence: US)
  Receive Date: 20151030
  Receipt Date: 20160219
  Transmission Date: 20160525
  Serious: Yes (Hospitalization, Other)
  Sender: FDA-Public Use
  Company Number: US-GLAXOSMITHKLINE-US2015153859

PATIENT
  Age: 42 Year
  Sex: Female

DRUGS (1)
  1. LAMICTAL [Suspect]
     Active Substance: LAMOTRIGINE
     Indication: SEIZURE
     Dosage: 100 MG, BID
     Route: 048
     Dates: start: 1997

REACTIONS (5)
  - Hysterectomy [Unknown]
  - Nasopharyngitis [Not Recovered/Not Resolved]
  - Exposure during pregnancy [Unknown]
  - Neoplasm malignant [Unknown]
  - Tumour excision [Unknown]

NARRATIVE: CASE EVENT DATE: 201503
